FAERS Safety Report 4548337-X (Version None)
Quarter: 2004Q4

REPORT INFORMATION
  Report Type: 
  Country: None (occurrence: None)
  Receive Date: 20041220
  Receipt Date: 20040517
  Transmission Date: 20050328
  Serious: Yes (Hospitalization)
  Sender: FDA-Public Use
  Company Number: US_0405103151

PATIENT
  Age: 56 Year
  Sex: Female

DRUGS (10)
  1. HUMULIN 70/30 [Suspect]
     Indication: DIABETES MELLITUS INSULIN-DEPENDENT
     Dosage: 42 U DAY
  2. PROZAC [Concomitant]
  3. AVANDIA [Concomitant]
  4. LANTUS [Concomitant]
  5. NOVOLOG [Concomitant]
  6. MONOPRIL [Concomitant]
  7. WELLBUTRIN [Concomitant]
  8. CIMETIDINE [Concomitant]
  9. XANAX [Concomitant]
  10. LORTAB [Concomitant]

REACTIONS (2)
  - BLOOD GLUCOSE INCREASED [None]
  - HYPOGLYCAEMIA [None]
